FAERS Safety Report 9168578 (Version 1)
Quarter: 2013Q1

REPORT INFORMATION
  Report Type: Spontaneous
  Country: US (occurrence: None)
  Receive Date: 20130314
  Receipt Date: 20130314
  Transmission Date: 20140127
  Serious: Yes (Other)
  Sender: FDA-Public Use
  Company Number: None

PATIENT
  Age: 40 Year
  Sex: Female
  Weight: 195.05 kg

DRUGS (1)
  1. TRAMADOL HCL 50MG [Suspect]
     Indication: TOOTHACHE
     Dates: start: 20130312, end: 20130312

REACTIONS (3)
  - Pain in extremity [None]
  - Arthralgia [None]
  - Joint stiffness [None]
